FAERS Safety Report 8906496 (Version 1)
Quarter: 2012Q4

REPORT INFORMATION
  Report Type: Spontaneous
  Country: GB (occurrence: None)
  Receive Date: 20121108
  Receipt Date: 20121108
  Transmission Date: 20130627
  Serious: Yes (Disabling, Other)
  Sender: FDA-Public Use
  Company Number: 2012MA013154

PATIENT
  Sex: Male

DRUGS (4)
  1. FINASTERIDE [Suspect]
     Indication: MALE PATTERN BALDNESS
     Route: 048
     Dates: start: 2000, end: 201110
  2. PAROXETINE [Concomitant]
  3. VENLAFAXINE [Concomitant]
  4. LYMECYCLINE [Concomitant]

REACTIONS (14)
  - Penile size reduced [None]
  - Skin disorder [None]
  - Psychiatric symptom [None]
  - Affective disorder [None]
  - Hormone level abnormal [None]
  - Depressed mood [None]
  - Endocrine disorder [None]
  - Facial wasting [None]
  - Facial pain [None]
  - Pain [None]
  - Skin wrinkling [None]
  - Connective tissue disorder [None]
  - Suicidal ideation [None]
  - Periorbital fat atrophy [None]
